FAERS Safety Report 16628607 (Version 3)
Quarter: 2019Q3

REPORT INFORMATION
  Report Type: Report from Study
  Country: EG (occurrence: EG)
  Receive Date: 20190725
  Receipt Date: 20190925
  Transmission Date: 20191004
  Serious: Yes (Death, Hospitalization, Other)
  Sender: FDA-Public Use
  Company Number: PHHY2019EG168722

PATIENT
  Age: 72 Year
  Sex: Female

DRUGS (8)
  1. KISQALI [Suspect]
     Active Substance: RIBOCICLIB
     Dosage: 2 DF, QD
     Route: 048
     Dates: start: 20190715
  2. UROSOLVINE [Concomitant]
     Indication: PRODUCT USED FOR UNKNOWN INDICATION
     Dosage: UNK UNK, BID
     Route: 065
  3. CAPOZIDE [Concomitant]
     Active Substance: CAPTOPRIL\HYDROCHLOROTHIAZIDE
     Indication: HYPERTENSION
     Route: 065
  4. JUSPRIN [Concomitant]
     Indication: PRODUCT USED FOR UNKNOWN INDICATION
     Route: 065
  5. KISQALI [Suspect]
     Active Substance: RIBOCICLIB
     Indication: BREAST CANCER
     Dosage: 600 MG, QD
     Route: 048
     Dates: start: 20190702
  6. KISQALI [Suspect]
     Active Substance: RIBOCICLIB
     Indication: METASTASES TO BONE
     Dosage: 400 MG, DAILY
     Route: 048
  7. AROMASIN [Concomitant]
     Active Substance: EXEMESTANE
     Indication: PRODUCT USED FOR UNKNOWN INDICATION
     Dosage: 3 DF, QD
     Route: 065
     Dates: end: 20190717
  8. NO-URIC [Concomitant]
     Indication: PRODUCT USED FOR UNKNOWN INDICATION
     Dosage: UNK
     Route: 065

REACTIONS (14)
  - Blood creatinine increased [Fatal]
  - Nausea [Fatal]
  - Asthenia [Not Recovered/Not Resolved]
  - Hypotension [Fatal]
  - Fatigue [Fatal]
  - Dyspnoea [Fatal]
  - Decreased appetite [Fatal]
  - Hepatic function abnormal [Fatal]
  - Metastasis [Fatal]
  - Renal impairment [Fatal]
  - Sleep disorder [Fatal]
  - Haemoglobin decreased [Not Recovered/Not Resolved]
  - Rectal haemorrhage [Not Recovered/Not Resolved]
  - Haemorrhage [Fatal]

NARRATIVE: CASE EVENT DATE: 201907
